FAERS Safety Report 4916016-2 (Version None)
Quarter: 2006Q1

REPORT INFORMATION
  Report Type: 
  Country: None (occurrence: None)
  Receive Date: 20060217
  Receipt Date: 20060207
  Transmission Date: 20060701
  Serious: Yes (Life-Threatening, Hospitalization)
  Sender: FDA-Public Use
  Company Number: CH-ABBOTT-06P-151-0324288-00

PATIENT
  Age: 37 Year
  Sex: Male

DRUGS (3)
  1. DEPAKENE [Suspect]
     Indication: EPILEPSY
     Dates: start: 20050701, end: 20051202
  2. VALPROATE SODIUM [Suspect]
     Indication: EPILEPSY
     Dosage: 400 MG X 4 OVER 24 HOURS
     Route: 042
     Dates: start: 20051207, end: 20051207
  3. DEXAMETHASONE TAB [Suspect]
     Indication: DRUG USE FOR UNKNOWN INDICATION
     Route: 042
     Dates: start: 20050801, end: 20051125

REACTIONS (13)
  - ACCIDENTAL OVERDOSE [None]
  - ADRENAL INSUFFICIENCY [None]
  - COMA [None]
  - COMPARTMENT SYNDROME [None]
  - DISSEMINATED INTRAVASCULAR COAGULATION [None]
  - DRUG LEVEL BELOW THERAPEUTIC [None]
  - HEPATIC FAILURE [None]
  - HEPATIC NECROSIS [None]
  - HEPATIC STEATOSIS [None]
  - MULTI-ORGAN FAILURE [None]
  - RENAL FAILURE ACUTE [None]
  - RHABDOMYOLYSIS [None]
  - TROPONIN T INCREASED [None]
